FAERS Safety Report 7239488-X (Version None)
Quarter: 2011Q1

REPORT INFORMATION
  Report Type: 
  Country: None (occurrence: None)
  Receive Date: 20110121
  Receipt Date: 20110113
  Transmission Date: 20110831
  Serious: Yes (Other)
  Sender: FDA-Public Use
  Company Number: US-RB-020738-11

PATIENT

DRUGS (3)
  1. SYNTHROID [Concomitant]
     Indication: THYROID DISORDER
     Dosage: DOSING DETAILS UNKNOWN
     Route: 065
  2. ALCOHOL [Suspect]
     Indication: PRODUCT USED FOR UNKNOWN INDICATION
     Dosage: DOSING DETAILS UNKNOWN
     Route: 065
  3. SUBOXONE [Suspect]
     Indication: PRODUCT USED FOR UNKNOWN INDICATION
     Dosage: OTHER DOSING DETAILS UNKNOWN
     Route: 065

REACTIONS (2)
  - DRUG INTERACTION [None]
  - LOSS OF CONSCIOUSNESS [None]
